FAERS Safety Report 19975144 (Version 2)
Quarter: 2021Q4

REPORT INFORMATION
  Report Type: Spontaneous
  Country: DE (occurrence: DE)
  Receive Date: 20211020
  Receipt Date: 20211101
  Transmission Date: 20220303
  Serious: Yes (Other)
  Sender: FDA-Public Use
  Company Number: DE-MLMSERVICE-20211006-3130870-1

PATIENT
  Age: 70 Year
  Sex: Female
  Weight: 80 kg

DRUGS (14)
  1. EXEMESTANE [Suspect]
     Active Substance: EXEMESTANE
     Indication: Breast cancer
     Dosage: 1 DF, 1X/DAY(1-0-0)
     Dates: start: 2015
  2. EMPAGLIFLOZIN [Suspect]
     Active Substance: EMPAGLIFLOZIN
     Indication: Type 2 diabetes mellitus
     Dosage: 1 DF, 1X/DAY(1-0-0).
  3. METFORMIN [Suspect]
     Active Substance: METFORMIN HYDROCHLORIDE
     Indication: Type 2 diabetes mellitus
     Dosage: 0.5 DF, 2X/DAY 0.5-0-0.5
  4. NALOXONE HYDROCHLORIDE\OXYCODONE HYDROCHLORIDE [Suspect]
     Active Substance: NALOXONE HYDROCHLORIDE\OXYCODONE HYDROCHLORIDE
     Dosage: 1 DF, 2X/DAY (1-0-1)
  5. LEVOTHYROXINE [Concomitant]
     Active Substance: LEVOTHYROXINE
     Dosage: 1 DF, 1X/DAY(1-0-0)
  6. POLYETHYLENE GLYCOLS [Concomitant]
     Active Substance: POLYETHYLENE GLYCOLS
     Dosage: 1 DF, 1X/DAY(1-0-0)
  7. METOPROLOL [Concomitant]
     Active Substance: METOPROLOL
     Indication: Left ventricular failure
     Dosage: 1 DF, 1X/DAY(0-0-1)
  8. ALLOPURINOL [Concomitant]
     Active Substance: ALLOPURINOL
     Dosage: 1 DF, 1X/DAY(1-0-0)
  9. XIPAMIDE [Concomitant]
     Active Substance: XIPAMIDE
     Indication: Oedema
     Dosage: 2 DF, 1X/DAY(2-0-0)
  10. PREGABALIN [Concomitant]
     Active Substance: PREGABALIN
     Dosage: 1 DF, 2X/DAY (1-0-1)
  11. IODINE [Concomitant]
     Active Substance: IODINE
     Dosage: 1 DF, 1X/DAY(1-0-0)
  12. ATORVASTATIN [Concomitant]
     Active Substance: ATORVASTATIN
     Dosage: 0.5 DF, 1X/DAY(0-0-0.5)
  13. ENALAPRIL [Concomitant]
     Active Substance: ENALAPRIL
     Indication: Left ventricular failure
     Dosage: 1 DF, 1X/DAY (1-0-0)
  14. ENALAPRIL [Concomitant]
     Active Substance: ENALAPRIL
     Indication: Congestive cardiomyopathy

REACTIONS (1)
  - Nausea [Unknown]
